FAERS Safety Report 5315355-3 (Version None)
Quarter: 2007Q2

REPORT INFORMATION
  Report Type: 
  Country: None (occurrence: None)
  Receive Date: 20070502
  Receipt Date: 20070423
  Transmission Date: 20071010
  Serious: Yes (Hospitalization, Other)
  Sender: FDA-Public Use
  Company Number: US-AMGEN-US221455

PATIENT
  Sex: Female

DRUGS (1)
  1. ENBREL [Suspect]
     Indication: RHEUMATOID ARTHRITIS
     Route: 058
     Dates: start: 20060309

REACTIONS (5)
  - CELLULITIS [None]
  - DELAYED RECOVERY FROM ANAESTHESIA [None]
  - METATARSAL EXCISION [None]
  - RHEUMATOID ARTHRITIS [None]
  - TOE AMPUTATION [None]
